FAERS Safety Report 4431201-4 (Version None)
Quarter: 2004Q3

REPORT INFORMATION
  Report Type: 
  Country: None (occurrence: None)
  Receive Date: 20040824
  Receipt Date: 20040817
  Transmission Date: 20050211
  Serious: Yes (Hospitalization)
  Sender: FDA-Public Use
  Company Number: AU-JNJFOC-20040801953

PATIENT
  Sex: Male
  Weight: 3.16 kg

DRUGS (18)
  1. RISPERDAL CONSTA [Suspect]
  2. RISPERIDONE [Suspect]
     Route: 015
  3. RISPERIDONE [Suspect]
     Route: 015
  4. VENTOLIN [Concomitant]
     Route: 015
  5. SERETIDE [Concomitant]
     Route: 015
  6. SERETIDE [Concomitant]
     Route: 015
  7. EFFEXOR [Concomitant]
     Dosage: 1 X 150 (UNITS UNSPECIFIED) ONCE DAILY
     Route: 015
  8. ACETAMINOPHEN W/ CODEINE [Concomitant]
     Dosage: 2 X 500 MG TABLETS AS REQUIRED
     Route: 015
  9. ACETAMINOPHEN W/ CODEINE [Concomitant]
     Dosage: FREQUENCY: ^STAT^
     Route: 015
  10. PETHIDINE [Concomitant]
     Dosage: FREQUENCY: ^STAT^
     Route: 015
  11. MAXALON [Concomitant]
     Dosage: FREQUENCY: ^STAT^
     Route: 015
  12. BENZODIAZEPINE [Concomitant]
     Route: 015
  13. METHAMPHETAMINE HCL [Concomitant]
     Dosage: MOTHER USES METHAMPHETAMINE DAILY: 0.6-0.8G PER DAY.
     Route: 015
  14. GENTAMYCIN SULFATE [Concomitant]
     Dosage: DOSING REGIMEN: 80 (UNITS UNSPECIFIED) DAILY
     Route: 015
  15. NITROFURANTOIN [Concomitant]
     Dosage: DOSING REGIMEN: 50 (UNITS UNSPECIFIED) EVERY 6 HOURS
     Route: 015
     Dates: start: 20040411, end: 20040425
  16. RANITIDINE [Concomitant]
     Dosage: DOSING REGIMEN: 2 X 150 (UNITS UNSPECIFIED) ADMINISTERED NOCTE
     Route: 015
  17. ACETAMINOPHEN [Concomitant]
     Dosage: DOSIG REGIMEN: 2 X 500 MG TABLETS AS REQUIRED
     Route: 015
  18. DIAZEPAM [Concomitant]
     Dosage: DOSING REGIMEN: 1-2 X 5MG TABLETS AS REQUIRED
     Route: 015

REACTIONS (4)
  - APGAR SCORE LOW [None]
  - ARRHYTHMIA [None]
  - RESPIRATORY DISTRESS [None]
  - UMBILICAL CORD AROUND NECK [None]
